FAERS Safety Report 21027833 (Version 1)
Quarter: 2022Q2

REPORT INFORMATION
  Report Type: Spontaneous
  Country: US (occurrence: None)
  Receive Date: 20220630
  Receipt Date: 20220630
  Transmission Date: 20220721
  Serious: Yes (Other)
  Sender: FDA-Public Use
  Company Number: None

PATIENT
  Age: 77 Year
  Sex: Female
  Weight: 64.35 kg

DRUGS (13)
  1. PAXLOVID [Suspect]
     Active Substance: NIRMATRELVIR\RITONAVIR
     Indication: COVID-19 treatment
     Dosage: FREQUENCY : EVERY 12 HOURS;?
     Route: 048
     Dates: start: 20220616, end: 20220621
  2. COUMADIN [Concomitant]
     Active Substance: WARFARIN SODIUM
  3. AMLODIPINE [Concomitant]
     Active Substance: AMLODIPINE BESYLATE
  4. ATORVASTATIN [Concomitant]
     Active Substance: ATORVASTATIN
  5. HYDROCHLOROTHIAZIDE [Concomitant]
     Active Substance: HYDROCHLOROTHIAZIDE
  6. DORZOLAMIDE [Concomitant]
     Active Substance: DORZOLAMIDE
  7. bimatoprast [Concomitant]
  8. RHOPRESSA [Concomitant]
     Active Substance: NETARSUDIL MESYLATE
  9. GABAPENTIN [Concomitant]
     Active Substance: GABAPENTIN
  10. NIACINAMIDE [Concomitant]
     Active Substance: NIACINAMIDE
  11. VITAMINS [Concomitant]
     Active Substance: VITAMINS
  12. CALCIUM [Concomitant]
     Active Substance: CALCIUM
  13. VITAMIN D NOS [Concomitant]
     Active Substance: VITAMIN D NOS

REACTIONS (2)
  - COVID-19 [None]
  - Rebound effect [None]

NARRATIVE: CASE EVENT DATE: 20220628
